FAERS Safety Report 9222780 (Version 1)
Quarter: 2013Q1

REPORT INFORMATION
  Report Type: Spontaneous
  Country: US (occurrence: None)
  Receive Date: 20120914
  Receipt Date: 20120914
  Transmission Date: 20140127
  Serious: Yes (Other)
  Sender: FDA-Public Use
  Company Number: JPI-P-022188

PATIENT
  Age: 54 Year
  Sex: Female

DRUGS (7)
  1. XYREM (500 MILLIGRAM/MILLILITERS, SOLUTION) (SODIUM OXYBATE) [Suspect]
     Indication: NARCOLEPSY
     Route: 048
     Dates: start: 20120619, end: 20120619
  2. DIPHENHYDRAMINE [Concomitant]
  3. LEVOTHYROXINE SODIUM [Concomitant]
  4. HYDROMORPHONE [Concomitant]
  5. AMPHETAMINE, DEXTROAMPHETAMINE MIXED SALTS [Concomitant]
  6. ZIPRASIDONE [Concomitant]
  7. CLONAZEPAM [Concomitant]

REACTIONS (9)
  - Hypersensitivity [None]
  - Condition aggravated [None]
  - Pharyngeal oedema [None]
  - Eye swelling [None]
  - Dysphagia [None]
  - Lacrimation increased [None]
  - Throat irritation [None]
  - Rhinorrhoea [None]
  - Cough [None]
